FAERS Safety Report 5059050-7 (Version None)
Quarter: 2006Q3

REPORT INFORMATION
  Report Type: 
  Country: None (occurrence: None)
  Receive Date: 20060719
  Receipt Date: 20060705
  Transmission Date: 20061208
  Serious: Yes (Life-Threatening, Hospitalization)
  Sender: FDA-Public Use
  Company Number: 226930

PATIENT
  Age: 54 Year
  Sex: Female
  Weight: 55.1 kg

DRUGS (1)
  1. RITUXIMAB OR PLACEBO (RITUXIMAB) CONC FOR SOLUTION FOR INFUSION [Suspect]
     Indication: MULTIPLE SCLEROSIS
     Dosage: 2 G, DAYS 1+15
     Dates: start: 20050818, end: 20060216

REACTIONS (4)
  - CHRONIC OBSTRUCTIVE PULMONARY DISEASE [None]
  - CONDITION AGGRAVATED [None]
  - RESPIRATORY ARREST [None]
  - RESPIRATORY FAILURE [None]
